FAERS Safety Report 20348715 (Version 1)
Quarter: 2022Q1

REPORT INFORMATION
  Report Type: Spontaneous
  Country: MX (occurrence: MX)
  Receive Date: 20220119
  Receipt Date: 20220119
  Transmission Date: 20220423
  Serious: Yes (Hospitalization)
  Sender: FDA-Public Use
  Company Number: MX-CELLTRION INC.-2022MX000426

PATIENT

DRUGS (6)
  1. INFLIXIMAB [Suspect]
     Active Substance: INFLIXIMAB
     Indication: Multisystem inflammatory syndrome
     Dosage: 2 DOSES
  2. CYCLOSPORINE [Concomitant]
     Active Substance: CYCLOSPORINE
     Indication: Multisystem inflammatory syndrome
     Dosage: 2 DOSES
  3. ENOXAPARIN [Concomitant]
     Active Substance: ENOXAPARIN
     Indication: Coagulopathy
     Dosage: 2 DOSES
  4. ASPIRIN [Concomitant]
     Active Substance: ASPIRIN
  5. CLOPIDOGREL [Concomitant]
     Active Substance: CLOPIDOGREL BISULFATE
  6. PROPRANOLOL [Concomitant]
     Active Substance: PROPRANOLOL HYDROCHLORIDE

REACTIONS (2)
  - Myocardial ischaemia [Recovered/Resolved]
  - Off label use [Unknown]
